FAERS Safety Report 8609972 (Version 2)
Quarter: 2012Q4

REPORT INFORMATION
  Report Type: 
  Country: US (occurrence: US)
  Receive Date: 20120612
  Receipt Date: 20120910
  Transmission Date: 20130627
  Serious: Yes (Other)
  Sender: FDA-Public Use
  Company Number: US-AMGEN-USASP2012034829

PATIENT
  Age: 48 Year
  Sex: Female

DRUGS (11)
  1. ENBREL [Suspect]
     Indication: PSORIATIC ARTHROPATHY
     Dosage: 50 mg, qwk
     Dates: start: 20120511
  2. CLONAZEPAM [Concomitant]
     Dosage: UNK
  3. FLUCONAZOLE [Concomitant]
     Dosage: UNK
  4. SINGULAR [Concomitant]
     Dosage: UNK
  5. SULINDAC [Concomitant]
     Dosage: UNK
  6. B COMPLEX                          /00212701/ [Concomitant]
     Dosage: UNK
  7. CITRACAL                           /00751520/ [Concomitant]
     Dosage: UNK
  8. FISH OIL [Concomitant]
     Dosage: UNK
  9. IRON SUPPLEMENT WITH VIT C + HERBS [Concomitant]
     Dosage: UNK
  10. VITAMIN D /00107901/ [Concomitant]
     Dosage: UNK
  11. TOPAMAX [Concomitant]
     Dosage: UNK

REACTIONS (7)
  - Asthma [Recovering/Resolving]
  - Injection site swelling [Not Recovered/Not Resolved]
  - Injection site erythema [Not Recovered/Not Resolved]
  - Injection site pruritus [Not Recovered/Not Resolved]
  - Injection site warmth [Not Recovered/Not Resolved]
  - Drug ineffective [Not Recovered/Not Resolved]
  - Injection site reaction [Unknown]
